FAERS Safety Report 19570526 (Version 3)
Quarter: 2021Q3

REPORT INFORMATION
  Report Type: Spontaneous
  Country: BR (occurrence: BR)
  Receive Date: 20210715
  Receipt Date: 20210722
  Transmission Date: 20211014
  Serious: Yes (Other)
  Sender: FDA-Public Use
  Company Number: BR-TAKEDA-2021TUS044080

PATIENT
  Age: 32 Year
  Sex: Male
  Weight: 172 kg

DRUGS (1)
  1. DEXILANT [Suspect]
     Active Substance: DEXLANSOPRAZOLE
     Indication: GASTRITIS
     Dosage: 60 MILLIGRAM, QD
     Route: 048
     Dates: start: 20210709, end: 20210712

REACTIONS (8)
  - Pyrexia [Unknown]
  - Syncope [Unknown]
  - Dizziness [Unknown]
  - Adverse drug reaction [Unknown]
  - Near death experience [Unknown]
  - Off label use [Unknown]
  - Diarrhoea [Unknown]
  - Abdominal pain [Unknown]

NARRATIVE: CASE EVENT DATE: 20210709
